FAERS Safety Report 18877330 (Version 1)
Quarter: 2021Q1

REPORT INFORMATION
  Report Type: Spontaneous
  Country: US (occurrence: US)
  Receive Date: 20210210
  Receipt Date: 20210210
  Transmission Date: 20210420
  Serious: Yes (Life-Threatening, Hospitalization)
  Sender: FDA-Public Use
  Company Number: None

PATIENT
  Sex: Female
  Weight: 82 kg

DRUGS (19)
  1. AZITHROMYCIN 500MG IV DAILY [Concomitant]
     Dates: start: 20201126, end: 20201127
  2. CEFTRIAXONE 1G IV DAILY [Concomitant]
     Dates: start: 20201126, end: 20201127
  3. PROPOFOL INFUSION [Concomitant]
     Active Substance: PROPOFOL
     Dates: start: 20201202, end: 20201204
  4. ENOXAPARIN 40MG SQ QHS [Concomitant]
     Dates: start: 20201126, end: 20201202
  5. NOREPINEPHRINE INFUSION [Concomitant]
     Active Substance: NOREPINEPHRINE
     Dates: start: 20201203, end: 20201204
  6. PANTOPRAZOLE 40MG PO DAILY [Concomitant]
     Dates: start: 20201126, end: 20201203
  7. LYRICA 50MG BID [Concomitant]
     Dates: start: 20201126, end: 20201203
  8. VALACYCLOVIR 1000MG PO DAILY [Concomitant]
     Dates: start: 20201127, end: 20201203
  9. ACETAMINOPHEN 650MG PO Q6H PRN [Concomitant]
     Dates: start: 20201126, end: 20201203
  10. ASPIRIN EC 325MG PO DAILY [Concomitant]
     Dates: start: 20201126, end: 20201127
  11. DEXAMETHASONE 6MG IV DAILY [Concomitant]
     Dates: start: 20201126, end: 20201204
  12. LORAZEPAM 0.5MG PO Q6H PRN ANXIETY [Concomitant]
     Dates: start: 20201127, end: 20201203
  13. REMDESIVIR. [Suspect]
     Active Substance: REMDESIVIR
     Indication: COVID-19 PNEUMONIA
     Dosage: ?          OTHER FREQUENCY:200MG X1, 100MG/D;?
     Route: 042
     Dates: start: 20201127, end: 20201201
  14. ALBUTEROL HFA 2 PUFF 4X/DAY PRN [Concomitant]
     Dates: start: 20201128, end: 20201204
  15. LACTULOSE 20GRAMS G TUBE Q8H [Concomitant]
     Dates: start: 20201203, end: 20201204
  16. DEXMEDETOMIDINE INFUSION [Concomitant]
     Dates: start: 20201201, end: 20201203
  17. FENTANYL INFUSION [Concomitant]
     Active Substance: FENTANYL
     Dates: start: 20201202, end: 20201204
  18. ARMOUR THYROID 60MG PO QAM [Concomitant]
     Dates: start: 20201127, end: 20201203
  19. EFFEXOR XR 150MG DAILY [Concomitant]
     Dates: start: 20201203, end: 20201203

REACTIONS (12)
  - Pharyngeal haemorrhage [None]
  - Encephalopathy [None]
  - International normalised ratio increased [None]
  - Dry throat [None]
  - Cerebral infarction [None]
  - Liver function test increased [None]
  - Platelet count decreased [None]
  - Aspartate aminotransferase increased [None]
  - Alanine aminotransferase increased [None]
  - Coagulopathy [None]
  - Ammonia increased [None]
  - White blood cell count increased [None]
